FAERS Safety Report 22207600 (Version 5)
Quarter: 2023Q2

REPORT INFORMATION
  Report Type: Spontaneous
  Country: CA (occurrence: CA)
  Receive Date: 20230413
  Receipt Date: 20230612
  Transmission Date: 20230722
  Serious: Yes (Other)
  Sender: FDA-Public Use
  Company Number: CA-PFIZER INC-202200415515

PATIENT
  Age: 12 Year
  Sex: Male
  Weight: 38 kg

DRUGS (5)
  1. GENOTROPIN [Suspect]
     Active Substance: SOMATROPIN
     Indication: Short stature
     Dosage: 1.2 MG, 6 TIMES A WEEK (1 DF)
     Route: 058
     Dates: start: 20170921, end: 201712
  2. GENOTROPIN [Suspect]
     Active Substance: SOMATROPIN
     Dosage: 1.6 MG, 1X/DAY (DISCONTINUED)
     Route: 058
     Dates: start: 201712
  3. GENOTROPIN [Suspect]
     Active Substance: SOMATROPIN
     Dosage: 2 MG, 6 TIMES A WEEK, DISCONTINUED - MINIQUICK
     Route: 058
  4. HELIXIA COUGH [Concomitant]
     Dosage: UNK
  5. FISH OIL\OMEGA-3 FATTY ACIDS [Concomitant]
     Active Substance: FISH OIL\OMEGA-3 FATTY ACIDS
     Dosage: UNK

REACTIONS (10)
  - Gastroenteritis norovirus [Unknown]
  - Therapeutic product effect incomplete [Unknown]
  - Cough [Unknown]
  - Headache [Recovered/Resolved]
  - SARS-CoV-2 test positive [Not Recovered/Not Resolved]
  - Insulin-like growth factor increased [Unknown]
  - Red blood cell count decreased [Unknown]
  - Blood testosterone decreased [Unknown]
  - Muscle spasms [Unknown]
  - Pain in extremity [Unknown]

NARRATIVE: CASE EVENT DATE: 20210712
